FAERS Safety Report 4675323-1 (Version None)
Quarter: 2005Q2

REPORT INFORMATION
  Report Type: 
  Country: None (occurrence: None)
  Receive Date: 20050525
  Receipt Date: 20050510
  Transmission Date: 20051028
  Serious: Yes (Hospitalization)
  Sender: FDA-Public Use
  Company Number: 214642

PATIENT
  Sex: Female
  Weight: 94 kg

DRUGS (2)
  1. HERCEPTIN [Suspect]
     Indication: BREAST CANCER METASTATIC
     Dosage: 189 MG, QD
     Dates: start: 20041028, end: 20050421
  2. DOCETAXEL (DOCETAXEL) [Concomitant]

REACTIONS (1)
  - POLYSEROSITIS [None]
